FAERS Safety Report 4604061-6 (Version None)
Quarter: 2005Q1

REPORT INFORMATION
  Report Type: 
  Country: None (occurrence: None)
  Receive Date: 20050308
  Receipt Date: 20050308
  Transmission Date: 20050727
  Serious: Yes (Death)
  Sender: FDA-Public Use
  Company Number: None

PATIENT
  Age: 75 Year
  Sex: Female

DRUGS (7)
  1. LEVAQUIN [Suspect]
     Indication: URINARY TRACT INFECTION
     Dosage: 500MG   ONCE    ORAL
     Route: 048
     Dates: start: 20041111, end: 20041111
  2. LISINOPRIL [Suspect]
     Indication: HYPERTENSION
     Dosage: 20MG   DAILY  ORAL
     Route: 048
     Dates: start: 20040102, end: 20041211
  3. TRICOR [Concomitant]
  4. ACTONEL [Concomitant]
  5. AMARYL [Concomitant]
  6. TOPROL-XL [Concomitant]
  7. COZAAR [Concomitant]

REACTIONS (8)
  - ANGIONEUROTIC OEDEMA [None]
  - ANOXIC ENCEPHALOPATHY [None]
  - CARDIAC ARREST [None]
  - COMA [None]
  - PULSE ABSENT [None]
  - RESPIRATORY ARREST [None]
  - SPEECH DISORDER [None]
  - SWOLLEN TONGUE [None]
